FAERS Safety Report 5615763-7 (Version None)
Quarter: 2008Q1

REPORT INFORMATION
  Report Type: 
  Country: None (occurrence: None)
  Receive Date: 20080206
  Receipt Date: 20080128
  Transmission Date: 20080703
  Serious: Yes (Life-Threatening, Hospitalization)
  Sender: FDA-Public Use
  Company Number: GB-ROCHE-534827

PATIENT
  Age: 63 Year
  Sex: Male
  Weight: 108 kg

DRUGS (18)
  1. CAPECITABINE [Suspect]
     Indication: COLON CANCER
     Route: 048
     Dates: start: 20071105
  2. BEVACIZUMAB [Suspect]
     Indication: COLON CANCER
     Route: 042
     Dates: start: 20071105
  3. ATENOLOL [Suspect]
     Indication: HYPERTENSION
     Dosage: OTHER INDICATION: CARDIAC;
     Route: 048
     Dates: start: 20071201, end: 20071206
  4. ATENOLOL [Suspect]
     Route: 048
     Dates: start: 20071210, end: 20071216
  5. ASPIRIN [Suspect]
     Indication: HYPERTENSION
     Dosage: OTHER INDICATION: CARDIAC;
     Route: 048
     Dates: start: 20071202, end: 20071206
  6. SIMVASTATIN [Suspect]
     Indication: HYPERTENSION
     Dosage: OTHER INDICATION: CARDIAC;
     Route: 048
     Dates: start: 20071201, end: 20071205
  7. SIMVASTATIN [Suspect]
     Route: 048
     Dates: start: 20071210, end: 20071218
  8. AMLODIPINE [Suspect]
     Indication: HYPERTENSION
     Dosage: OTHER INDICATION: CARDIAC;
     Route: 048
     Dates: start: 20071201, end: 20071206
  9. AMLODIPINE [Suspect]
     Route: 048
     Dates: start: 20071210, end: 20071215
  10. PARACETAMOL [Concomitant]
     Route: 048
     Dates: start: 20071201, end: 20071219
  11. ONDANSETRON [Concomitant]
     Route: 042
     Dates: start: 20071202, end: 20071203
  12. ENOXAPARIN SODIUM [Concomitant]
     Route: 058
     Dates: start: 20071201, end: 20071205
  13. ENOXAPARIN SODIUM [Concomitant]
     Route: 058
     Dates: start: 20071210, end: 20071218
  14. MEROPENEM [Concomitant]
     Route: 042
     Dates: start: 20071205, end: 20071212
  15. MORPHINE [Concomitant]
     Dosage: AS PER ALGORITHM
     Route: 058
     Dates: start: 20071201, end: 20071206
  16. SODIUM CHLORIDE INJ [Concomitant]
     Dates: start: 20071206
  17. LANSOPRAZOLE [Concomitant]
     Route: 048
     Dates: start: 20071213, end: 20071219
  18. OMEPRAZOLE [Concomitant]
     Route: 042
     Dates: start: 20071208, end: 20071212

REACTIONS (2)
  - INTESTINAL ISCHAEMIA [None]
  - PANCREATITIS [None]
